FAERS Safety Report 20721126 (Version 1)
Quarter: 2022Q2

REPORT INFORMATION
  Report Type: Spontaneous
  Country: US (occurrence: None)
  Receive Date: 20220415
  Receipt Date: 20220415
  Transmission Date: 20220721
  Serious: Yes (Disabling)
  Sender: FDA-Public Use
  Company Number: None

PATIENT
  Age: 25 Year
  Sex: Female
  Weight: 81 kg

DRUGS (1)
  1. ELURYNG [Suspect]
     Active Substance: ETHINYL ESTRADIOL\ETONOGESTREL
     Indication: Contraception
     Dates: start: 20200101, end: 20210701

REACTIONS (8)
  - Product substitution issue [None]
  - Mood swings [None]
  - Diarrhoea [None]
  - Abdominal discomfort [None]
  - Abdominal distension [None]
  - Weight increased [None]
  - Skin striae [None]
  - Body dysmorphic disorder [None]

NARRATIVE: CASE EVENT DATE: 20210701
